FAERS Safety Report 17547576 (Version 2)
Quarter: 2020Q1

REPORT INFORMATION
  Report Type: Spontaneous
  Country: US (occurrence: US)
  Receive Date: 20200317
  Receipt Date: 20200331
  Transmission Date: 20200409
  Serious: No
  Sender: FDA-Public Use
  Company Number: US-LUPIN PHARMACEUTICALS INC.-2020-01038

PATIENT
  Age: 62 Year
  Sex: Female
  Weight: 104 kg

DRUGS (3)
  1. OXYCODONE HYDROCHLORIDE TABLETS USP, 15 MG [Suspect]
     Active Substance: OXYCODONE HYDROCHLORIDE
     Indication: MUSCULOSKELETAL PAIN
  2. OXYCODONE HYDROCHLORIDE TABLETS USP, 15 MG [Suspect]
     Active Substance: OXYCODONE HYDROCHLORIDE
     Indication: BACK PAIN
  3. OXYCODONE HYDROCHLORIDE TABLETS USP, 15 MG [Suspect]
     Active Substance: OXYCODONE HYDROCHLORIDE
     Indication: ARTHRALGIA
     Dosage: UNK UNK, PRN
     Route: 048
     Dates: start: 20200204

REACTIONS (3)
  - Wrong technique in product usage process [Unknown]
  - Nausea [Recovered/Resolved]
  - Rash pruritic [Recovered/Resolved]

NARRATIVE: CASE EVENT DATE: 202002
